FAERS Safety Report 21212730 (Version 1)
Quarter: 2022Q3

REPORT INFORMATION
  Report Type: Spontaneous
  Country: US (occurrence: None)
  Receive Date: 20220813
  Receipt Date: 20220813
  Transmission Date: 20221027
  Serious: Yes (Hospitalization)
  Sender: FDA-Public Use
  Company Number: None

PATIENT
  Age: 3 Year
  Sex: Male
  Weight: 14 kg

DRUGS (4)
  1. CARBOPLATIN [Suspect]
     Active Substance: CARBOPLATIN
     Dates: end: 20200910
  2. ETOPOSIDE [Suspect]
     Active Substance: ETOPOSIDE
     Dates: end: 20200910
  3. MELPHALAN [Suspect]
     Active Substance: MELPHALAN
     Dates: end: 20200909
  4. LEUKINE [Suspect]
     Active Substance: SARGRAMOSTIM
     Dates: end: 20200927

REACTIONS (4)
  - Vomiting [None]
  - Diarrhoea [None]
  - Dehydration [None]
  - Food intolerance [None]

NARRATIVE: CASE EVENT DATE: 20201214
